FAERS Safety Report 12844617 (Version 1)
Quarter: 2016Q4

REPORT INFORMATION
  Report Type: Spontaneous
  Country: US (occurrence: US)
  Receive Date: 20161013
  Receipt Date: 20161013
  Transmission Date: 20170207
  Serious: No
  Sender: FDA-Public Use
  Company Number: US-PFIZER INC-2016473105

PATIENT
  Age: 14 Year
  Sex: Female

DRUGS (1)
  1. QUILLIVANT XR [Suspect]
     Active Substance: METHYLPHENIDATE HYDROCHLORIDE
     Indication: ATTENTION DEFICIT/HYPERACTIVITY DISORDER
     Dosage: 4 MG, DAILY (4 MG EVERY MORNING FOR A WEEK, THEN 6 MG OTHER WEEKS)

REACTIONS (3)
  - Dissociation [Unknown]
  - Nausea [Unknown]
  - Headache [Unknown]
